FAERS Safety Report 10184033 (Version 1)
Quarter: 2014Q2

REPORT INFORMATION
  Report Type: Spontaneous
  Country: US (occurrence: US)
  Receive Date: 20140520
  Receipt Date: 20140520
  Transmission Date: 20141212
  Serious: Yes (Hospitalization, Other)
  Sender: FDA-Public Use
  Company Number: US-ELI_LILLY_AND_COMPANY-US201405002813

PATIENT
  Sex: Female
  Weight: 56.69 kg

DRUGS (2)
  1. INSULIN HUMAN [Suspect]
     Indication: TYPE 1 DIABETES MELLITUS
     Dosage: UNK
     Route: 065
     Dates: start: 1975
  2. HUMULIN ULTRALENTE [Suspect]
     Indication: TYPE 1 DIABETES MELLITUS
     Dosage: UNK
     Route: 065
     Dates: start: 1975

REACTIONS (7)
  - Coma [Recovered/Resolved]
  - Diabetic ketoacidosis [Unknown]
  - Maternal exposure during pregnancy [Recovered/Resolved]
  - Blood glucose fluctuation [Unknown]
  - Insulin resistance [Unknown]
  - Hypoglycaemia unawareness [Unknown]
  - Neuropathy peripheral [Unknown]
